FAERS Safety Report 8560655-7 (Version None)
Quarter: 2012Q3

REPORT INFORMATION
  Report Type: 
  Country: None (occurrence: None)
  Receive Date: 20120802
  Receipt Date: 20120727
  Transmission Date: 20120928
  Serious: Yes (Other)
  Sender: FDA-Public Use
  Company Number: PHHY2012BR029557

PATIENT
  Sex: Female
  Weight: 94 kg

DRUGS (2)
  1. FLUOXETINE HCL [Concomitant]
     Indication: AGITATION
     Dosage: 20 MG, QD
  2. GILENYA [Suspect]
     Indication: MULTIPLE SCLEROSIS
     Dosage: 0.5 MG, QD
     Route: 048

REACTIONS (14)
  - HORDEOLUM [None]
  - PYREXIA [None]
  - VITAMIN D DECREASED [None]
  - LABYRINTHITIS [None]
  - PRURITUS [None]
  - EYE IRRITATION [None]
  - INFLUENZA [None]
  - DYSPNOEA [None]
  - FATIGUE [None]
  - HEART RATE IRREGULAR [None]
  - PSORIASIS [None]
  - EMOTIONAL POVERTY [None]
  - RASH MACULAR [None]
  - ALOPECIA [None]
